FAERS Safety Report 7536990-8 (Version None)
Quarter: 2011Q2

REPORT INFORMATION
  Report Type: 
  Country: None (occurrence: None)
  Receive Date: 20110609
  Receipt Date: 20110602
  Transmission Date: 20111010
  Serious: Yes (Other)
  Sender: FDA-Public Use
  Company Number: PHHY2011US48084

PATIENT
  Age: 52 Year
  Sex: Female

DRUGS (3)
  1. MELOXICAM [Suspect]
     Indication: OSTEOARTHRITIS
     Dosage: 15 MG/DAY
  2. LISINOPRIL [Suspect]
     Dosage: 20 MG/D
  3. OMEPRAZOLE [Suspect]
     Dosage: 20 MG/D

REACTIONS (12)
  - ABDOMINAL PAIN [None]
  - HAEMORRHAGE [None]
  - CONSTIPATION [None]
  - SERUM FERRITIN DECREASED [None]
  - VOMITING [None]
  - ULCER [None]
  - IRON BINDING CAPACITY TOTAL INCREASED [None]
  - GASTROINTESTINAL DISORDER [None]
  - INTESTINAL STENOSIS [None]
  - BLOOD IRON DECREASED [None]
  - HAEMOGLOBIN DECREASED [None]
  - BLOOD ALBUMIN DECREASED [None]
